FAERS Safety Report 10858042 (Version 2)
Quarter: 2015Q2

REPORT INFORMATION
  Report Type: Spontaneous
  Country: US (occurrence: US)
  Receive Date: 20150223
  Receipt Date: 20150521
  Transmission Date: 20150821
  Serious: Yes (Hospitalization, Other)
  Sender: FDA-Public Use
  Company Number: US-GLAXOSMITHKLINE-US2015023060

PATIENT
  Age: 71 Year
  Sex: Male

DRUGS (16)
  1. METOPROLOL [Concomitant]
     Active Substance: METOPROLOL
  2. SIMVASTATIN. [Concomitant]
     Active Substance: SIMVASTATIN
  3. LANTUS [Concomitant]
     Active Substance: INSULIN GLARGINE
  4. NASACORT [Concomitant]
     Active Substance: TRIAMCINOLONE ACETONIDE
  5. VITAMIN B12 [Concomitant]
     Active Substance: CYANOCOBALAMIN
  6. WARFARIN [Concomitant]
     Active Substance: WARFARIN
  7. IRON [Concomitant]
     Active Substance: IRON
  8. ADVAIR DISKUS [Suspect]
     Active Substance: FLUTICASONE PROPIONATE\SALMETEROL XINAFOATE
     Indication: CHRONIC OBSTRUCTIVE PULMONARY DISEASE
     Dosage: 1 PUFF(S), BID
     Route: 055
     Dates: start: 2006
  9. TERAZOSIN [Concomitant]
     Active Substance: TERAZOSIN\TERAZOSIN HYDROCHLORIDE
  10. TORSEMIDE. [Concomitant]
     Active Substance: TORSEMIDE
  11. TAMSULOSIN [Concomitant]
     Active Substance: TAMSULOSIN
  12. SPIRONOLACTONE. [Concomitant]
     Active Substance: SPIRONOLACTONE
  13. DILTIAZEM [Concomitant]
     Active Substance: DILTIAZEM
  14. APIDRA [Concomitant]
     Active Substance: INSULIN GLULISINE
  15. VITAMIN C [Concomitant]
     Active Substance: ASCORBIC ACID
  16. FINASTERIDE. [Concomitant]
     Active Substance: FINASTERIDE

REACTIONS (9)
  - Leg amputation [Unknown]
  - Wound infection staphylococcal [Recovering/Resolving]
  - Foot amputation [Recovering/Resolving]
  - Cardioversion [Recovered/Resolved]
  - Pneumonia [Recovering/Resolving]
  - Toe amputation [Unknown]
  - Heart rate irregular [Recovered/Resolved]
  - Localised infection [Unknown]
  - Blood pressure decreased [Recovering/Resolving]

NARRATIVE: CASE EVENT DATE: 20141101
